FAERS Safety Report 4564369-X (Version None)
Quarter: 2005Q1

REPORT INFORMATION
  Report Type: 
  Country: None (occurrence: None)
  Receive Date: 20050128
  Receipt Date: 20041213
  Transmission Date: 20050727
  Serious: Yes (Other)
  Sender: FDA-Public Use
  Company Number: NL-GLAXOSMITHKLINE-B0362400A

PATIENT
  Age: 56 Year
  Sex: Male

DRUGS (3)
  1. AMOXICILLIN TRIHYDRATE + POTASSIUM CLAVULANATE [Suspect]
     Indication: SKIN INFECTION
     Dosage: 1Z THREE TIMES PER DAY
     Route: 065
     Dates: start: 20040910, end: 20040917
  2. ENALAPRIL MALEATE [Concomitant]
     Dosage: 20MG UNKNOWN
     Route: 065
     Dates: start: 19980417
  3. CORENITEC [Concomitant]
     Route: 065
     Dates: start: 20020211

REACTIONS (4)
  - ALANINE AMINOTRANSFERASE INCREASED [None]
  - ASPARTATE AMINOTRANSFERASE INCREASED [None]
  - GAMMA-GLUTAMYLTRANSFERASE INCREASED [None]
  - HEPATIC FUNCTION ABNORMAL [None]
